FAERS Safety Report 8966348 (Version 4)
Quarter: 2013Q4

REPORT INFORMATION
  Report Type: Report from Study
  Country: CA (occurrence: CA)
  Receive Date: 20121214
  Receipt Date: 20131018
  Transmission Date: 20140711
  Serious: Yes (Other)
  Sender: FDA-Public Use
  Company Number: CA-GLAXOSMITHKLINE-A0888410A

PATIENT
  Age: 34 Year
  Sex: Female

DRUGS (3)
  1. TYKERB [Suspect]
     Indication: BREAST CANCER METASTATIC
     Dosage: 1250MG PER DAY
     Route: 048
     Dates: start: 20100914
  2. XELODA [Suspect]
     Indication: PRODUCT USED FOR UNKNOWN INDICATION
     Route: 065
  3. COUMADIN [Concomitant]

REACTIONS (21)
  - Thrombosis in device [Recovered/Resolved]
  - Local swelling [Recovered/Resolved]
  - Skin induration [Not Recovered/Not Resolved]
  - Fatigue [Unknown]
  - Insomnia [Unknown]
  - Nasopharyngitis [Unknown]
  - Pain [Unknown]
  - Headache [Unknown]
  - Epigastric discomfort [Unknown]
  - Flatulence [Unknown]
  - Abdominal distension [Unknown]
  - Rash macular [Unknown]
  - Pain [Unknown]
  - Breast cancer metastatic [Unknown]
  - Dry skin [Unknown]
  - Nail bed tenderness [Unknown]
  - Diarrhoea [Unknown]
  - Skin fissures [Unknown]
  - Viral infection [Not Recovered/Not Resolved]
  - Erythema [Recovered/Resolved]
  - Inflammation [Recovered/Resolved]
